FAERS Safety Report 5944370-1 (Version None)
Quarter: 2008Q4

REPORT INFORMATION
  Report Type: 
  Country: None (occurrence: None)
  Receive Date: 20081106
  Receipt Date: 20081106
  Transmission Date: 20090506
  Serious: No
  Sender: FDA-Public Use
  Company Number: None

PATIENT
  Age: 25 Year
  Sex: Male
  Weight: 78.0187 kg

DRUGS (1)
  1. KEFLEX [Suspect]
     Indication: INGROWING NAIL
     Dosage: 500MG ONE PO BID
     Route: 048

REACTIONS (1)
  - RASH PAPULAR [None]
